FAERS Safety Report 8089400-9 (Version None)
Quarter: 2012Q1

REPORT INFORMATION
  Report Type: 
  Country: None (occurrence: None)
  Receive Date: 20120128
  Receipt Date: 20110714
  Transmission Date: 20120608
  Serious: No
  Sender: FDA-Public Use
  Company Number: US-ABBOTT-11P-163-0724903-00

PATIENT
  Age: 50 Year
  Sex: Male

DRUGS (4)
  1. METOPROLOL TARTRATE [Concomitant]
     Indication: HYPERTENSION
     Dosage: 100MG DAILY
  2. QUINAPRIL [Concomitant]
     Indication: HYPERTENSION
  3. HYDROCHLOROT [Concomitant]
     Indication: HYPERTENSION
     Dosage: 25MG DAILY
  4. HUMIRA [Suspect]
     Indication: PSORIASIS
     Dates: start: 20110314

REACTIONS (4)
  - DRY SKIN [None]
  - SKIN FISSURES [None]
  - PSORIASIS [None]
  - DRUG INEFFECTIVE [None]
